FAERS Safety Report 10182511 (Version 1)
Quarter: 2014Q2

REPORT INFORMATION
  Report Type: Spontaneous
  Country: US (occurrence: None)
  Receive Date: 20140519
  Receipt Date: 20140519
  Transmission Date: 20141212
  Serious: Yes (Disabling)
  Sender: FDA-Public Use
  Company Number: None

PATIENT
  Age: 30 Year
  Sex: Female
  Weight: 58.06 kg

DRUGS (1)
  1. MIRENA IUD [Suspect]

REACTIONS (9)
  - Menorrhagia [None]
  - Dizziness [None]
  - Nausea [None]
  - Alopecia [None]
  - Depression [None]
  - Mood swings [None]
  - Insomnia [None]
  - Loss of libido [None]
  - Dyspareunia [None]
